FAERS Safety Report 6608049-5 (Version None)
Quarter: 2010Q1

REPORT INFORMATION
  Report Type: 
  Country: None (occurrence: None)
  Receive Date: 20100212
  Receipt Date: 20100111
  Transmission Date: 20100710
  Serious: No
  Sender: FDA-Public Use
  Company Number: 1000011225

PATIENT
  Age: 35 Year
  Sex: Female

DRUGS (6)
  1. SAVELLA [Suspect]
     Dosage: 12.5 MG (12.5 MG, 1 IN 1 D), ORAL; 25 MG (12.5 MG, 2 IN 1 D), ORAL; 50 MG (25 MG, 2 IN 1 D), ORAL; 1
     Route: 048
     Dates: start: 20091128, end: 20091128
  2. SAVELLA [Suspect]
     Dosage: 12.5 MG (12.5 MG, 1 IN 1 D), ORAL; 25 MG (12.5 MG, 2 IN 1 D), ORAL; 50 MG (25 MG, 2 IN 1 D), ORAL; 1
     Route: 048
     Dates: start: 20091129, end: 20091130
  3. SAVELLA [Suspect]
     Dosage: 12.5 MG (12.5 MG, 1 IN 1 D), ORAL; 25 MG (12.5 MG, 2 IN 1 D), ORAL; 50 MG (25 MG, 2 IN 1 D), ORAL; 1
     Route: 048
     Dates: start: 20091201, end: 20091204
  4. SAVELLA [Suspect]
     Dosage: 12.5 MG (12.5 MG, 1 IN 1 D), ORAL; 25 MG (12.5 MG, 2 IN 1 D), ORAL; 50 MG (25 MG, 2 IN 1 D), ORAL; 1
     Route: 048
     Dates: start: 20091205, end: 20091228
  5. SAVELLA [Suspect]
     Dosage: 50 MG (50 MG, 1 IN 1 D), ORAL
     Route: 048
     Dates: start: 20091231, end: 20091231
  6. HYDROCODONE [Concomitant]

REACTIONS (2)
  - CHEST DISCOMFORT [None]
  - CHEST PAIN [None]
